FAERS Safety Report 5277501-X (Version None)
Quarter: 2007Q2

REPORT INFORMATION
  Report Type: 
  Country: None (occurrence: None)
  Receive Date: 20070327
  Receipt Date: 20070323
  Transmission Date: 20071010
  Serious: Yes (Hospitalization)
  Sender: FDA-Public Use
  Company Number: US-JNJFOC-20070305609

PATIENT
  Age: 65 Year
  Sex: Female

DRUGS (17)
  1. PREZISTA [Suspect]
     Indication: HIV INFECTION
     Route: 048
  2. MK0518 [Suspect]
     Indication: HIV INFECTION
     Route: 048
  3. RITONAVIR [Suspect]
     Indication: HIV INFECTION
     Route: 048
  4. LAMIVUDINE [Suspect]
     Indication: HIV INFECTION
     Route: 048
  5. NORVASC [Concomitant]
     Route: 065
  6. LOMITIL [Concomitant]
     Route: 065
  7. AZITHROMYCIN [Concomitant]
     Route: 065
  8. CALCIUM CARBONATE [Concomitant]
     Route: 065
  9. NEXIUM [Concomitant]
     Route: 065
  10. IRON [Concomitant]
     Route: 065
  11. MAGNESIUM [Concomitant]
     Route: 065
  12. ALINIA [Concomitant]
     Route: 065
  13. PREDNISONE [Concomitant]
     Route: 065
  14. VALCYTE [Concomitant]
     Route: 065
  15. BACTRIM [Concomitant]
     Route: 065
  16. VITAMIN D [Concomitant]
     Route: 065
  17. COUMADIN [Concomitant]
     Route: 065

REACTIONS (1)
  - LIVER FUNCTION TEST ABNORMAL [None]
